FAERS Safety Report 14802317 (Version 1)
Quarter: 2018Q2

REPORT INFORMATION
  Report Type: Spontaneous
  Country: US (occurrence: US)
  Receive Date: 20180424
  Receipt Date: 20180424
  Transmission Date: 20180711
  Serious: No
  Sender: FDA-Public Use
  Company Number: US-PURDUE-USA-2018-0142905

PATIENT
  Age: 63 Year
  Sex: Female

DRUGS (12)
  1. OXYCONTIN [Suspect]
     Active Substance: OXYCODONE HYDROCHLORIDE
     Indication: PAIN
  2. OXYCODONE                          /00045603/ [Suspect]
     Active Substance: OXYCODONE
     Indication: UTERINE LEIOMYOMA
  3. OXYCONTIN [Suspect]
     Active Substance: OXYCODONE HYDROCHLORIDE
     Indication: HEADACHE
  4. OXYCONTIN [Suspect]
     Active Substance: OXYCODONE HYDROCHLORIDE
     Indication: ARTHRITIS
  5. OXYCONTIN [Suspect]
     Active Substance: OXYCODONE HYDROCHLORIDE
     Indication: INTERVERTEBRAL DISC PROTRUSION
     Dosage: 80 MG, DAILY
     Route: 048
     Dates: start: 201709
  6. OXYCONTIN [Suspect]
     Active Substance: OXYCODONE HYDROCHLORIDE
     Indication: MULTIPLE FRACTURES
  7. OXYCODONE                          /00045603/ [Suspect]
     Active Substance: OXYCODONE
     Indication: PAIN
  8. OXYCODONE                          /00045603/ [Suspect]
     Active Substance: OXYCODONE
     Indication: INTERVERTEBRAL DISC PROTRUSION
     Dosage: 30 MG, QID PRN
     Route: 048
  9. OXYCODONE                          /00045603/ [Suspect]
     Active Substance: OXYCODONE
     Indication: MULTIPLE FRACTURES
  10. OXYCODONE                          /00045603/ [Suspect]
     Active Substance: OXYCODONE
     Indication: HEADACHE
  11. OXYCONTIN [Suspect]
     Active Substance: OXYCODONE HYDROCHLORIDE
     Indication: UTERINE LEIOMYOMA
  12. OXYCODONE                          /00045603/ [Suspect]
     Active Substance: OXYCODONE
     Indication: ARTHRITIS

REACTIONS (11)
  - Headache [Not Recovered/Not Resolved]
  - Pain [Not Recovered/Not Resolved]
  - Drug hypersensitivity [Unknown]
  - Asthma [Unknown]
  - Feeling abnormal [Unknown]
  - Asthenia [Not Recovered/Not Resolved]
  - Dyspnoea [Not Recovered/Not Resolved]
  - Malaise [Unknown]
  - Skin odour abnormal [Not Recovered/Not Resolved]
  - Loss of personal independence in daily activities [Not Recovered/Not Resolved]
  - Dysgeusia [Unknown]

NARRATIVE: CASE EVENT DATE: 201710
